FAERS Safety Report 9792996 (Version 3)
Quarter: 2014Q2

REPORT INFORMATION
  Report Type: Other
  Country: IT (occurrence: IT)
  Receive Date: 20140102
  Receipt Date: 20140422
  Transmission Date: 20141212
  Serious: Yes (Hospitalization, Other)
  Sender: FDA-Public Use
  Company Number: IT-TAKEDA-2014TEU000007

PATIENT
  Age: 24 Year
  Sex: Female

DRUGS (3)
  1. LANSOX [Suspect]
     Indication: PRODUCT USED FOR UNKNOWN INDICATION
     Dosage: 420 MG, TOTAL
     Route: 048
     Dates: start: 20131210
  2. CIPROFLOXACIN HYDROCHLORIDE [Suspect]
     Dosage: 2500 MG, TOTAL
     Route: 048
     Dates: start: 20131210
  3. BRUFEN                             /00109201/ [Suspect]
     Dosage: 18 G, TOTAL
     Route: 048
     Dates: start: 20131210

REACTIONS (4)
  - Metabolic acidosis [Recovering/Resolving]
  - Abdominal pain upper [Recovering/Resolving]
  - Renal failure [Recovering/Resolving]
  - Drug abuse [Unknown]
